FAERS Safety Report 20916156 (Version 1)
Quarter: 2022Q2

REPORT INFORMATION
  Report Type: Spontaneous
  Country: US (occurrence: US)
  Receive Date: 20220604
  Receipt Date: 20220604
  Transmission Date: 20220721
  Serious: No
  Sender: FDA-Public Use
  Company Number: US-SA-SAC20220602000928

PATIENT
  Age: 19 Year
  Sex: Male

DRUGS (1)
  1. DUPIXENT [Suspect]
     Active Substance: DUPILUMAB
     Indication: Dermatitis atopic
     Dosage: THERAPY START DATE - FEB,2022,300 MG, QOW
     Route: 058
     Dates: start: 202202

REACTIONS (3)
  - General physical condition abnormal [Not Recovered/Not Resolved]
  - Acne [Not Recovered/Not Resolved]
  - Mental disorder [Not Recovered/Not Resolved]
